FAERS Safety Report 7125070-1 (Version None)
Quarter: 2010Q4

REPORT INFORMATION
  Report Type: 
  Country: None (occurrence: None)
  Receive Date: 20101115
  Receipt Date: 20101103
  Transmission Date: 20110411
  Serious: Yes (Hospitalization, Other)
  Sender: FDA-Public Use
  Company Number: WAES 1011USA00409

PATIENT
  Age: 54 Year
  Sex: Male
  Weight: 95.709 kg

DRUGS (9)
  1. VYTORIN [Suspect]
     Indication: LIVER DISORDER
     Dosage: 10-80MG/DAILY/PO
     Route: 048
  2. VYTORIN [Suspect]
     Indication: RENAL DISORDER
     Dosage: 10-80MG/DAILY/PO
     Route: 048
  3. PRINIVIL [Suspect]
     Indication: CARDIAC DISORDER
     Dosage: 10 MG/DAILY/PO
     Route: 048
     Dates: start: 20090101
  4. PRINIVIL [Suspect]
     Indication: RENAL DISORDER
     Dosage: 10 MG/DAILY/PO
     Route: 048
     Dates: start: 20090101
  5. CHANTIX [Suspect]
     Indication: SMOKING CESSATION THERAPY
     Dosage: 0.5 MG/DAILY/PO
     Route: 048
     Dates: start: 20101018
  6. ASPIRIN [Suspect]
     Indication: ANTICOAGULANT THERAPY
     Dosage: 325 MG/DAILY
     Dates: start: 20090101
  7. TOPROL-XL [Suspect]
     Dosage: 25 MG/DAILY/PO
     Route: 048
     Dates: start: 20090101
  8. PLAVIX [Suspect]
     Indication: ANTICOAGULANT THERAPY
     Dosage: 75 MG/DAILY/PO
     Route: 048
     Dates: start: 20090101
  9. RANEXA [Concomitant]

REACTIONS (1)
  - CHEST PAIN [None]
